FAERS Safety Report 6794184-8 (Version None)
Quarter: 2010Q2

REPORT INFORMATION
  Report Type: 
  Country: None (occurrence: None)
  Receive Date: 20100624
  Receipt Date: 20071029
  Transmission Date: 20101027
  Serious: No
  Sender: FDA-Public Use
  Company Number: US-PFIZER INC-ENC200700189

PATIENT
  Sex: Female

DRUGS (7)
  1. ARGATROBAN [Suspect]
     Indication: PROPHYLAXIS
     Dosage: FREQUENCY:  UNK
     Route: 042
     Dates: start: 20071023, end: 20071023
  2. ARGATROBAN [Suspect]
     Dosage: FREQUENCY:  UNK
     Route: 042
     Dates: start: 20071023, end: 20071023
  3. ARGATROBAN [Suspect]
     Dosage: FREQUENCY:  UNK
     Route: 042
     Dates: start: 20071023, end: 20071023
  4. INSULIN [Concomitant]
  5. CALCIUM CHLORIDE DIHYDRATE [Concomitant]
  6. MAGNESIUM SULFATE [Concomitant]
  7. PHENYLEPHRINE HYDROCHLORIDE [Concomitant]

REACTIONS (2)
  - THROMBOCYTOPENIA [None]
  - THROMBOSIS IN DEVICE [None]
